FAERS Safety Report 4488344-9 (Version None)
Quarter: 2004Q4

REPORT INFORMATION
  Report Type: 
  Country: None (occurrence: None)
  Receive Date: 20041026
  Receipt Date: 20041012
  Transmission Date: 20050328
  Serious: Yes (Hospitalization, Disabling)
  Sender: FDA-Public Use
  Company Number: HQWYE996713SEP04

PATIENT
  Sex: Female

DRUGS (2)
  1. EFFEXOR XR [Suspect]
     Indication: MENTAL DISORDER
     Dosage: 75 MG, FREQUENCY UNSPECIFIED, ORAL;  75 MG EVERY OTHER DAY AND DISCONTINUED, ORAL
     Route: 048
     Dates: start: 20040101, end: 20040901
  2. EFFEXOR XR [Suspect]
     Indication: MENTAL DISORDER
     Dosage: 75 MG, FREQUENCY UNSPECIFIED, ORAL;  75 MG EVERY OTHER DAY AND DISCONTINUED, ORAL
     Route: 048
     Dates: start: 20040901

REACTIONS (15)
  - ASTHENIA [None]
  - BLOOD PRESSURE INCREASED [None]
  - DRUG WITHDRAWAL SYNDROME [None]
  - EMOTIONAL DISTRESS [None]
  - FATIGUE [None]
  - FEELING ABNORMAL [None]
  - HEADACHE [None]
  - IMPAIRED DRIVING ABILITY [None]
  - IMPAIRED WORK ABILITY [None]
  - INCOHERENT [None]
  - INFLUENZA LIKE ILLNESS [None]
  - INSOMNIA [None]
  - MENTAL IMPAIRMENT [None]
  - NIGHTMARE [None]
  - PARAESTHESIA [None]
